FAERS Safety Report 16672807 (Version 6)
Quarter: 2019Q3

REPORT INFORMATION
  Report Type: Spontaneous
  Country: US (occurrence: US)
  Receive Date: 20190806
  Receipt Date: 20190930
  Transmission Date: 20191004
  Serious: No
  Sender: FDA-Public Use
  Company Number: US-BIOGEN-2019BI00766184

PATIENT
  Age: 48 Year
  Sex: Female

DRUGS (13)
  1. PEPTO-BISMOL [Concomitant]
     Active Substance: BISMUTH SUBSALICYLATE
     Route: 065
  2. AMPHETAMINE/DEXTROAMPHETA [Concomitant]
     Route: 065
  3. DIAZEPAM. [Concomitant]
     Active Substance: DIAZEPAM
     Route: 065
  4. TECFIDERA [Suspect]
     Active Substance: DIMETHYL FUMARATE
     Dosage: TAKE ONE 120 MG CAPSULE BY MOUTH TWICE DAILY FOR THE FIRST 7 DAYS, THEREAFTER TAKE ONE 240 MG CAP...
     Route: 048
     Dates: start: 20190723
  5. FLUOXETINE [Concomitant]
     Active Substance: FLUOXETINE HYDROCHLORIDE
     Route: 065
  6. TOPIRAMATE. [Concomitant]
     Active Substance: TOPIRAMATE
     Route: 065
  7. ROPINIROLE. [Concomitant]
     Active Substance: ROPINIROLE
     Route: 065
  8. ZOFRAN [Concomitant]
     Active Substance: ONDANSETRON HYDROCHLORIDE
     Route: 065
  9. PROMETHAZINE [Concomitant]
     Active Substance: PROMETHAZINE HYDROCHLORIDE
     Route: 065
  10. SUMATRIPTAN. [Concomitant]
     Active Substance: SUMATRIPTAN
     Route: 065
  11. TECFIDERA [Suspect]
     Active Substance: DIMETHYL FUMARATE
     Indication: MULTIPLE SCLEROSIS
     Route: 048
     Dates: start: 20190712
  12. TYSABRI [Suspect]
     Active Substance: NATALIZUMAB
     Indication: MULTIPLE SCLEROSIS
     Route: 042
     Dates: start: 20190429, end: 20190531
  13. WELLBUTRIN [Concomitant]
     Active Substance: BUPROPION HYDROCHLORIDE
     Route: 065

REACTIONS (24)
  - Drug ineffective [Unknown]
  - Hypersomnia [Unknown]
  - Hot flush [Recovered/Resolved with Sequelae]
  - Fall [Recovered/Resolved]
  - Anxiety [Unknown]
  - Nausea [Not Recovered/Not Resolved]
  - Asthenia [Unknown]
  - Spinal pain [Unknown]
  - Balance disorder [Unknown]
  - Skin abrasion [Unknown]
  - Hypoaesthesia [Unknown]
  - Periorbital pain [Unknown]
  - Memory impairment [Unknown]
  - Fatigue [Unknown]
  - Decreased appetite [Unknown]
  - Neuralgia [Unknown]
  - Aphasia [Unknown]
  - Diarrhoea [Not Recovered/Not Resolved]
  - Flushing [Unknown]
  - Paraesthesia [Unknown]
  - Hyperhidrosis [Recovered/Resolved with Sequelae]
  - Headache [Unknown]
  - Weight decreased [Unknown]
  - Depression [Unknown]

NARRATIVE: CASE EVENT DATE: 20190803
